FAERS Safety Report 4693481-X (Version None)
Quarter: 2005Q2

REPORT INFORMATION
  Report Type: 
  Country: None (occurrence: None)
  Receive Date: 20050617
  Receipt Date: 20050418
  Transmission Date: 20051028
  Serious: Yes (Hospitalization, Other)
  Sender: FDA-Public Use
  Company Number: PHNU2005DE01670

PATIENT
  Age: 65 Year
  Sex: Female
  Weight: 82 kg

DRUGS (2)
  1. ZOMETA [Suspect]
     Indication: METASTASES TO BONE
     Dosage: 4 MG, QMO
     Route: 042
     Dates: start: 20030320, end: 20050209
  2. ARIMIDEX [Concomitant]
     Indication: BREAST CANCER METASTATIC
     Route: 048
     Dates: start: 20030201

REACTIONS (9)
  - ABSCESS JAW [None]
  - ANAESTHESIA [None]
  - ASEPTIC NECROSIS BONE [None]
  - DENTAL OPERATION [None]
  - IMPAIRED HEALING [None]
  - INFLAMMATION [None]
  - LYMPHADENECTOMY [None]
  - SWELLING [None]
  - WOUND DEBRIDEMENT [None]
